FAERS Safety Report 12638369 (Version 1)
Quarter: 2016Q3

REPORT INFORMATION
  Report Type: Spontaneous
  Country: US (occurrence: US)
  Receive Date: 20160809
  Receipt Date: 20160809
  Transmission Date: 20161109
  Serious: No
  Sender: FDA-Public Use
  Company Number: US-SA-2016SA106276

PATIENT
  Age: 76 Year
  Sex: Female

DRUGS (2)
  1. PRALUENT [Suspect]
     Active Substance: ALIROCUMAB
     Route: 065
     Dates: start: 20160512
  2. ALIROCUMAB PREFILLED PEN [Concomitant]
     Active Substance: ALIROCUMAB
     Dates: start: 20160512

REACTIONS (1)
  - Bone pain [Unknown]

NARRATIVE: CASE EVENT DATE: 201605
